FAERS Safety Report 7046526-6 (Version None)
Quarter: 2010Q4

REPORT INFORMATION
  Report Type: 
  Country: None (occurrence: None)
  Receive Date: 20101014
  Receipt Date: 20100903
  Transmission Date: 20110411
  Serious: No
  Sender: FDA-Public Use
  Company Number: US-BAXTER-2010BH003478

PATIENT
  Age: 59 Year
  Sex: Male
  Weight: 70 kg

DRUGS (26)
  1. HEPARIN SODIUM INJECTION [Suspect]
     Indication: PRODUCT USED FOR UNKNOWN INDICATION
     Route: 058
     Dates: start: 20080124, end: 20080124
  2. HEPARIN SODIUM INJECTION [Suspect]
     Route: 058
     Dates: start: 20080125, end: 20080125
  3. HEPARIN SODIUM INJECTION [Suspect]
     Route: 058
     Dates: start: 20080125, end: 20080125
  4. HEPARIN SODIUM INJECTION [Suspect]
     Route: 058
     Dates: start: 20080125, end: 20080125
  5. HEPARIN SODIUM INJECTION [Suspect]
     Route: 058
     Dates: start: 20080126, end: 20080126
  6. HEPARIN SODIUM INJECTION [Suspect]
     Route: 058
     Dates: start: 20080126, end: 20080126
  7. HEPARIN SODIUM INJECTION [Suspect]
     Route: 058
     Dates: start: 20080126, end: 20080126
  8. HEPARIN SODIUM INJECTION [Suspect]
     Route: 058
     Dates: start: 20080127, end: 20080127
  9. HEPARIN SODIUM INJECTION [Suspect]
     Route: 058
     Dates: start: 20080127, end: 20080127
  10. ALBUTEROL [Concomitant]
     Indication: PRODUCT USED FOR UNKNOWN INDICATION
     Route: 055
     Dates: start: 20080124, end: 20080124
  11. ALBUTEROL [Concomitant]
     Route: 055
     Dates: start: 20080124, end: 20080127
  12. CEFTRIAXONE [Concomitant]
     Indication: PRODUCT USED FOR UNKNOWN INDICATION
     Route: 042
     Dates: start: 20080124, end: 20080127
  13. DOXYCYCLINE [Concomitant]
     Indication: PRODUCT USED FOR UNKNOWN INDICATION
     Route: 048
     Dates: start: 20080124, end: 20080127
  14. ADVAIR DISKUS 100/50 [Concomitant]
     Indication: PRODUCT USED FOR UNKNOWN INDICATION
     Route: 055
     Dates: start: 20080124, end: 20080127
  15. ATROVENT [Concomitant]
     Indication: PRODUCT USED FOR UNKNOWN INDICATION
     Route: 055
     Dates: start: 20080124, end: 20080124
  16. ATROVENT [Concomitant]
     Route: 055
     Dates: start: 20080124, end: 20080125
  17. METHYLPREDNISOLONE [Concomitant]
     Indication: PRODUCT USED FOR UNKNOWN INDICATION
     Route: 042
     Dates: start: 20080124, end: 20080124
  18. METHYLPREDNISOLONE [Concomitant]
     Route: 042
     Dates: start: 20080124, end: 20080127
  19. ZYPREXA [Concomitant]
     Indication: PRODUCT USED FOR UNKNOWN INDICATION
     Route: 048
     Dates: start: 20080125, end: 20080126
  20. PANTOPRAZOLE [Concomitant]
     Indication: PRODUCT USED FOR UNKNOWN INDICATION
     Route: 048
     Dates: start: 20080126, end: 20080127
  21. PREDNISONE [Concomitant]
     Indication: PRODUCT USED FOR UNKNOWN INDICATION
     Route: 048
     Dates: start: 20080124, end: 20080125
  22. ZANTAC [Concomitant]
     Indication: PRODUCT USED FOR UNKNOWN INDICATION
     Route: 042
     Dates: start: 20080124, end: 20080125
  23. ZOLOFT [Concomitant]
     Indication: PRODUCT USED FOR UNKNOWN INDICATION
     Route: 048
     Dates: start: 20080125, end: 20080125
  24. ZOLOFT [Concomitant]
     Route: 048
     Dates: start: 20080125, end: 20080126
  25. BACTRIM [Concomitant]
     Indication: PRODUCT USED FOR UNKNOWN INDICATION
     Route: 048
     Dates: start: 20080124, end: 20080124
  26. TIOTROPIUM [Concomitant]
     Indication: PRODUCT USED FOR UNKNOWN INDICATION
     Route: 055
     Dates: start: 20080126, end: 20080127

REACTIONS (4)
  - BLOOD URINE PRESENT [None]
  - HYPERTENSION [None]
  - RASH [None]
  - URTICARIA [None]
